FAERS Safety Report 16371049 (Version 1)
Quarter: 2019Q2

REPORT INFORMATION
  Report Type: Spontaneous
  Country: US (occurrence: US)
  Receive Date: 20190423
  Receipt Date: 20190423
  Transmission Date: 20190711
  Serious: Yes (Death)
  Sender: FDA-Public Use
  Company Number: None

PATIENT
  Age: 70 Year
  Sex: Female
  Weight: 20.77 kg

DRUGS (2)
  1. OSIMERTINIB 80 MG [Suspect]
     Active Substance: OSIMERTINIB
     Indication: NON-SMALL CELL LUNG CANCER
     Route: 048
     Dates: start: 20161215, end: 20190301
  2. DASATINIB 50 MG [Suspect]
     Active Substance: DASATINIB
     Indication: NON-SMALL CELL LUNG CANCER
     Route: 048
     Dates: start: 20161215, end: 20190301

REACTIONS (3)
  - Bacterial infection [None]
  - Viral infection [None]
  - Pneumonitis [None]

NARRATIVE: CASE EVENT DATE: 20190421
